FAERS Safety Report 5413328-3 (Version None)
Quarter: 2007Q3

REPORT INFORMATION
  Report Type: 
  Country: None (occurrence: None)
  Receive Date: 20070810
  Receipt Date: 20070725
  Transmission Date: 20080115
  Serious: Yes (Hospitalization)
  Sender: FDA-Public Use
  Company Number: 2007BI004456

PATIENT
  Sex: Female

DRUGS (13)
  1. AVONEX [Suspect]
     Indication: MULTIPLE SCLEROSIS
     Dosage: 30 UG; ; IM
     Route: 030
     Dates: start: 20041001
  2. AVONEX [Suspect]
  3. AVONEX [Suspect]
  4. AVONEX [Suspect]
  5. AVONEX [Suspect]
  6. AVONEX [Suspect]
  7. MIRTAZAPINE [Concomitant]
  8. BACLOFEN [Concomitant]
  9. VENTOLIN [Concomitant]
  10. CLONIDINE [Concomitant]
  11. GABAPENTIN [Concomitant]
  12. TRAMADOL HCL [Concomitant]
  13. CAPSAICIN CREAM [Concomitant]

REACTIONS (4)
  - CYST [None]
  - KNEE ARTHROPLASTY [None]
  - MENISCUS LESION [None]
  - OSTEOARTHRITIS [None]
